FAERS Safety Report 14412811 (Version 8)
Quarter: 2018Q2

REPORT INFORMATION
  Report Type: Spontaneous
  Country: US (occurrence: US)
  Receive Date: 20180119
  Receipt Date: 20180515
  Transmission Date: 20180711
  Serious: Yes (Hospitalization, Other)
  Sender: FDA-Public Use
  Company Number: US-PFIZER INC-2018021056

PATIENT
  Age: 56 Year
  Sex: Female
  Weight: 78.5 kg

DRUGS (16)
  1. OXYCODONE [Concomitant]
     Active Substance: OXYCODONE
     Dosage: UNK
  2. ZOFRAN [Concomitant]
     Active Substance: ONDANSETRON HYDROCHLORIDE
     Dosage: UNK
  3. TIAZAC [Concomitant]
     Active Substance: DILTIAZEM HYDROCHLORIDE
     Dosage: UNK
  4. LISINOPRIL. [Concomitant]
     Active Substance: LISINOPRIL
     Dosage: UNK
  5. PROMETHAZINE [Concomitant]
     Active Substance: PROMETHAZINE\PROMETHAZINE HYDROCHLORIDE
     Dosage: UNK
  6. PROTONIX [Concomitant]
     Active Substance: PANTOPRAZOLE SODIUM
     Dosage: UNK
  7. ALBUTEROL INHALER [Concomitant]
     Active Substance: ALBUTEROL
     Dosage: UNK, AS NEEDED
  8. LIPITOR [Concomitant]
     Active Substance: ATORVASTATIN CALCIUM
     Dosage: UNK
  9. GUAIFENESIN/CODEINE [Concomitant]
     Active Substance: CODEINE PHOSPHATE\GUAIFENESIN
     Indication: COUGH
     Dosage: UNK, AS NEEDED
  10. SUTENT [Suspect]
     Active Substance: SUNITINIB MALATE
     Indication: RENAL CANCER METASTATIC
     Dosage: 50 MG, UNK
     Dates: start: 201709
  11. SUTENT [Suspect]
     Active Substance: SUNITINIB MALATE
     Dosage: 37.5 MG, CYCLIC (2 WEEKS ON/1 WEEK OFF)
     Dates: start: 201709
  12. ELAVIL [Concomitant]
     Active Substance: AMITRIPTYLINE HYDROCHLORIDE
     Dosage: UNK
  13. PERI-COLACE [Concomitant]
     Active Substance: CASANTHRANOL\DOCUSATE SODIUM
     Dosage: UNK
  14. MIRACLE MOUTH WASH [Concomitant]
     Active Substance: UNSPECIFIED INGREDIENT
     Dosage: UNK
  15. FIBER GUMMIES [Concomitant]
     Dosage: UNK
  16. LABETALOL [Concomitant]
     Active Substance: LABETALOL\LABETALOL HYDROCHLORIDE
     Dosage: UNK UNK, AS NEEDED, (TWICE A DAY ALMOST THIS ENTIRE 2 WEEK CYCLE)

REACTIONS (20)
  - Loss of consciousness [Unknown]
  - Oral pain [Not Recovered/Not Resolved]
  - Dyspepsia [Unknown]
  - Oral discomfort [Not Recovered/Not Resolved]
  - Hypertension [Not Recovered/Not Resolved]
  - Nausea [Unknown]
  - Glossodynia [Not Recovered/Not Resolved]
  - Neoplasm progression [Unknown]
  - Dry mouth [Not Recovered/Not Resolved]
  - Constipation [Unknown]
  - Blood glucose decreased [Unknown]
  - Dysgeusia [Unknown]
  - Fatigue [Not Recovered/Not Resolved]
  - Weight increased [Unknown]
  - Decreased appetite [Unknown]
  - Eating disorder [Unknown]
  - Pain [Not Recovered/Not Resolved]
  - Pneumonia [Recovering/Resolving]
  - Headache [Unknown]
  - Tongue discomfort [Not Recovered/Not Resolved]
